FAERS Safety Report 21999299 (Version 1)
Quarter: 2023Q1

REPORT INFORMATION
  Report Type: Spontaneous
  Country: US (occurrence: None)
  Receive Date: 20230215
  Receipt Date: 20230215
  Transmission Date: 20230417
  Serious: Yes (unspecified)
  Sender: FDA-Public Use
  Company Number: None

PATIENT
  Age: 45 Year
  Sex: Male
  Weight: 72 kg

DRUGS (2)
  1. DEVICE [Suspect]
     Active Substance: DEVICE
  2. FLUOROURACIL [Suspect]
     Active Substance: FLUOROURACIL

REACTIONS (2)
  - Device leakage [None]
  - Incorrect dose administered [None]

NARRATIVE: CASE EVENT DATE: 20230123
